FAERS Safety Report 4334329-2 (Version None)
Quarter: 2004Q2

REPORT INFORMATION
  Report Type: 
  Country: None (occurrence: None)
  Receive Date: 20040405
  Receipt Date: 20040325
  Transmission Date: 20050107
  Serious: Yes (Hospitalization, Other)
  Sender: FDA-Public Use
  Company Number: HQWYE106025MAR04

PATIENT
  Age: 6 Year
  Sex: Female

DRUGS (2)
  1. CHILDREN'S ADVIL (IBUPROFEN SUSPENSION) [Suspect]
     Indication: PYREXIA
     Dosage: UNKNOWN; ORAL
     Route: 048
     Dates: end: 20030801
  2. NIFLURIL (NIFLUMIC ACID, ) [Suspect]
     Indication: PYREXIA
     Dosage: UNKNOWN; ORAL
     Route: 048

REACTIONS (1)
  - CELLULITIS [None]
